FAERS Safety Report 22347787 (Version 1)
Quarter: 2023Q2

REPORT INFORMATION
  Report Type: Report from Study
  Country: US (occurrence: US)
  Receive Date: 20230522
  Receipt Date: 20230522
  Transmission Date: 20230721
  Serious: Yes (Other)
  Sender: FDA-Public Use
  Company Number: US-ABBVIE-4771959

PATIENT
  Age: 72 Year
  Sex: Male

DRUGS (3)
  1. VENCLEXTA [Suspect]
     Active Substance: VENETOCLAX
     Indication: Myeloid leukaemia in remission
     Dosage: DAY 1
     Route: 048
     Dates: start: 20230510, end: 20230510
  2. VENCLEXTA [Suspect]
     Active Substance: VENETOCLAX
     Indication: Myeloid leukaemia in remission
     Dosage: FIRST ADMIN DATE-MAY 2023
     Route: 048
  3. VENCLEXTA [Suspect]
     Active Substance: VENETOCLAX
     Indication: Myeloid leukaemia in remission
     Dosage: DAY 2
     Route: 048
     Dates: start: 20230511, end: 20230511

REACTIONS (4)
  - Stent removal [Unknown]
  - Arthralgia [Unknown]
  - Infection [Unknown]
  - Blood test abnormal [Unknown]

NARRATIVE: CASE EVENT DATE: 20230516
